FAERS Safety Report 8966636 (Version 1)
Quarter: 2012Q4

REPORT INFORMATION
  Report Type: 
  Country: US (occurrence: US)
  Receive Date: 20121217
  Receipt Date: 20121217
  Transmission Date: 20130627
  Serious: No
  Sender: FDA-Public Use
  Company Number: US-PFIZER INC-2012318514

PATIENT
  Age: 76 Year
  Sex: Male

DRUGS (1)
  1. LIPITOR [Suspect]
     Dosage: 20 mg
     Route: 048

REACTIONS (1)
  - Blood cholesterol decreased [Unknown]
